FAERS Safety Report 7577826-9 (Version None)
Quarter: 2011Q2

REPORT INFORMATION
  Report Type: 
  Country: None (occurrence: None)
  Receive Date: 20110628
  Receipt Date: 20110616
  Transmission Date: 20111010
  Serious: Yes (Disabling)
  Sender: FDA-Public Use
  Company Number: PHHY2011JP53799

PATIENT
  Sex: Male

DRUGS (3)
  1. COMTAN [Suspect]
     Route: 048
  2. LEVODOPA [Concomitant]
  3. SELEGILINE HCL [Concomitant]
     Route: 048

REACTIONS (2)
  - DYSPHAGIA [None]
  - MUSCLE RIGIDITY [None]
